FAERS Safety Report 14925099 (Version 1)
Quarter: 2018Q2

REPORT INFORMATION
  Report Type: Spontaneous
  Country: US (occurrence: US)
  Receive Date: 20180522
  Receipt Date: 20180522
  Transmission Date: 20180711
  Serious: No
  Sender: FDA-Public Use
  Company Number: US-MYLANLABS-2018M1032650

PATIENT
  Sex: Female
  Weight: 77 kg

DRUGS (2)
  1. CLONIDINE TRANSDERMAL SYSTEM [Suspect]
     Active Substance: CLONIDINE
     Dosage: 0.2 MG, UNK
     Route: 062
  2. CLONIDINE TRANSDERMAL SYSTEM [Suspect]
     Active Substance: CLONIDINE
     Indication: HYPERTENSION
     Dosage: 0.1 MG, UNK
     Route: 062
     Dates: end: 20180426

REACTIONS (7)
  - Application site irritation [Unknown]
  - Application site erythema [Recovering/Resolving]
  - Application site pruritus [Recovering/Resolving]
  - Application site scab [Not Recovered/Not Resolved]
  - Application site rash [Unknown]
  - Application site inflammation [Recovering/Resolving]
  - Application site urticaria [Unknown]
